FAERS Safety Report 21552430 (Version 3)
Quarter: 2022Q4

REPORT INFORMATION
  Report Type: Spontaneous
  Country: CA (occurrence: CA)
  Receive Date: 20221104
  Receipt Date: 20221213
  Transmission Date: 20230113
  Serious: Yes (Hospitalization)
  Sender: FDA-Public Use
  Company Number: CA-CELLTRION INC.-2022CA007471

PATIENT

DRUGS (4)
  1. INFLECTRA [Suspect]
     Active Substance: INFLIXIMAB-DYYB
     Indication: Crohn^s disease
     Dosage: 10 MG/KG AT WEEK 0, 2 AND 6 THEN Q 8 WEEKS
     Route: 042
     Dates: start: 20220526
  2. INFLECTRA [Suspect]
     Active Substance: INFLIXIMAB-DYYB
     Dosage: 10 MG/KG AT WEEK 0, 2 AND 6 THEN Q 8 WEEKS
     Route: 042
     Dates: start: 20220706
  3. INFLECTRA [Suspect]
     Active Substance: INFLIXIMAB-DYYB
     Dosage: 10 MG/KG AT WEEK 0, 2 AND 6 THEN Q 8 WEEKS
     Route: 042
     Dates: start: 20220831
  4. INFLECTRA [Suspect]
     Active Substance: INFLIXIMAB-DYYB
     Dosage: 10 MG/KG AT WEEK 0, 2 AND 6 THEN Q 8 WEEKS
     Route: 042
     Dates: start: 20221026

REACTIONS (6)
  - Condition aggravated [Recovering/Resolving]
  - Off label use [Unknown]
  - Intentional product use issue [Unknown]
  - Off label use [Unknown]
  - Inappropriate schedule of product administration [Unknown]
  - Cyst [Unknown]
